FAERS Safety Report 5690069-9 (Version None)
Quarter: 2008Q2

REPORT INFORMATION
  Report Type: 
  Country: None (occurrence: None)
  Receive Date: 20080401
  Receipt Date: 20080321
  Transmission Date: 20081010
  Serious: Yes (Other)
  Sender: FDA-Public Use
  Company Number: PHEH2008US02046

PATIENT
  Sex: Female

DRUGS (2)
  1. ARIMIDEX [Suspect]
  2. FEMARA [Suspect]

REACTIONS (3)
  - COMPUTERISED TOMOGRAM ABNORMAL [None]
  - ENDOMETRIAL NEOPLASM [None]
  - VAGINAL NEOPLASM [None]
